FAERS Safety Report 17105269 (Version 1)
Quarter: 2019Q4

REPORT INFORMATION
  Report Type: Spontaneous
  Country: GB (occurrence: GB)
  Receive Date: 20191203
  Receipt Date: 20191203
  Transmission Date: 20200122
  Serious: Yes (Other)
  Sender: FDA-Public Use
  Company Number: GB-TEVA-2019-GB-1144255

PATIENT
  Age: 21 Year
  Sex: Female
  Weight: 63 kg

DRUGS (3)
  1. RIGEVIDON [Concomitant]
     Dosage: 1 TABLET ONCE A DAY FOR TAKE TWO DAILY DAYS FOL...
     Dates: start: 20180907, end: 20191015
  2. MILLINETTE [Concomitant]
     Dosage: TAKE ONE AS DIRECTED
     Dates: start: 20191015
  3. AMOXICILLIN. [Suspect]
     Active Substance: AMOXICILLIN
     Indication: LOWER RESPIRATORY TRACT INFECTION
     Dosage: 1500 MG PER DAY
     Dates: start: 20191022

REACTIONS (2)
  - Rash [Recovering/Resolving]
  - Swollen tongue [Recovering/Resolving]

NARRATIVE: CASE EVENT DATE: 20191025
